FAERS Safety Report 5360403-8 (Version None)
Quarter: 2007Q2

REPORT INFORMATION
  Report Type: 
  Country: None (occurrence: None)
  Receive Date: 20070612
  Receipt Date: 20070606
  Transmission Date: 20071010
  Serious: Yes (Other)
  Sender: FDA-Public Use
  Company Number: 2007BI010355

PATIENT
  Age: 48 Year
  Sex: Female

DRUGS (6)
  1. NATALIZUMAB [Suspect]
     Indication: MULTIPLE SCLEROSIS
     Dosage: 300 MG; QM; IV
     Route: 042
     Dates: start: 20061107, end: 20070510
  2. WELLBUTRIN [Concomitant]
  3. MOTRIN [Concomitant]
  4. AMANTADINE HCL [Concomitant]
  5. AMBIEN [Concomitant]
  6. IMIPRAMINE [Concomitant]

REACTIONS (1)
  - COLON CANCER [None]
